FAERS Safety Report 5345638-2 (Version None)
Quarter: 2007Q2

REPORT INFORMATION
  Report Type: 
  Country: None (occurrence: None)
  Receive Date: 20070424
  Receipt Date: 20060918
  Transmission Date: 20071010
  Serious: Yes (Other)
  Sender: FDA-Public Use
  Company Number: TEST00206003077

PATIENT
  Age: 57 Year
  Sex: Male
  Weight: 110 kg

DRUGS (9)
  1. ANDROGEL [Suspect]
     Indication: HYPOGONADISM
     Dosage: DAILY TRANSCUTANEOUS DAILY: 6 DOSAGE FORM QD TRANSCUTANEOUS DAILY DOSE: 6 DOSAGE FORM
     Dates: start: 20060611
  2. ACTOS [Concomitant]
  3. METFORMIN HCL [Concomitant]
  4. AVALIDE (AVALIDE) [Concomitant]
  5. ASPIRIN [Concomitant]
  6. GLIPIZIDE [Concomitant]
  7. LESCOL [Concomitant]
  8. ZETIA [Concomitant]
  9. VIAGRA [Concomitant]

REACTIONS (3)
  - BENIGN PROSTATIC HYPERPLASIA [None]
  - HAEMATOCRIT INCREASED [None]
  - PROSTATIC SPECIFIC ANTIGEN INCREASED [None]
